FAERS Safety Report 7961336-0 (Version None)
Quarter: 2011Q4

REPORT INFORMATION
  Report Type: 
  Country: None (occurrence: None)
  Receive Date: 20111207
  Receipt Date: 20111128
  Transmission Date: 20120403
  Serious: Yes (Hospitalization, Other)
  Sender: FDA-Public Use
  Company Number: US-SANOFI-AVENTIS-2011SA078213

PATIENT
  Age: 82 Year
  Sex: Female
  Weight: 59 kg

DRUGS (4)
  1. PLAVIX [Suspect]
     Indication: STENT PLACEMENT
     Route: 048
     Dates: start: 20090601
  2. PLAVIX [Suspect]
     Indication: SURGERY
     Route: 048
     Dates: start: 20090601
  3. ASPIRIN [Suspect]
  4. VESICARE [Concomitant]

REACTIONS (6)
  - CHEST PAIN [None]
  - HAEMORRHAGE [None]
  - HIATUS HERNIA [None]
  - DUODENAL ULCER [None]
  - GASTRITIS [None]
  - OESOPHAGITIS [None]
